FAERS Safety Report 10572130 (Version 1)
Quarter: 2014Q4

REPORT INFORMATION
  Report Type: Spontaneous
  Country: US (occurrence: US)
  Receive Date: 20141107
  Receipt Date: 20141107
  Transmission Date: 20150529
  Serious: Yes (Other)
  Sender: FDA-Public Use
  Company Number: US-ASTRAZENECA-2014SE83464

PATIENT
  Age: 73 Year
  Sex: Male
  Weight: 81.6 kg

DRUGS (5)
  1. ASPIRIN. [Concomitant]
     Active Substance: ASPIRIN
     Indication: PAIN
     Route: 048
  2. PATANASE [Concomitant]
     Active Substance: OLOPATADINE HYDROCHLORIDE
     Indication: SINUS CONGESTION
     Route: 045
  3. NETI POT [Concomitant]
     Indication: NASAL DISORDER
     Route: 045
  4. FLONASE [Concomitant]
     Active Substance: FLUTICASONE PROPIONATE
     Indication: SINUS CONGESTION
     Route: 045
  5. SYMBICORT [Suspect]
     Active Substance: BUDESONIDE\FORMOTEROL FUMARATE DIHYDRATE
     Indication: CHRONIC OBSTRUCTIVE PULMONARY DISEASE
     Dosage: 160/ 4.5 MCG, 2 PUFFS, TWICE A DAY
     Route: 055

REACTIONS (9)
  - Upper-airway cough syndrome [Not Recovered/Not Resolved]
  - Seasonal allergy [Unknown]
  - Choking sensation [Unknown]
  - Dyspnoea [Unknown]
  - Gait disturbance [Unknown]
  - Nasal congestion [Not Recovered/Not Resolved]
  - Nasal discomfort [Unknown]
  - Sinus headache [Not Recovered/Not Resolved]
  - Sinusitis [Unknown]

NARRATIVE: CASE EVENT DATE: 2014
